FAERS Safety Report 21965378 (Version 1)
Quarter: 2023Q1

REPORT INFORMATION
  Report Type: Spontaneous
  Country: IT (occurrence: IT)
  Receive Date: 20230208
  Receipt Date: 20230208
  Transmission Date: 20230418
  Serious: Yes (Hospitalization, Other)
  Sender: FDA-Public Use
  Company Number: IT-MINISAL02-907144

PATIENT
  Age: 82 Year
  Sex: Male

DRUGS (1)
  1. FLECAINIDE [Suspect]
     Active Substance: FLECAINIDE
     Indication: Atrial tachycardia
     Dosage: FLECAINIDE 100MG ORE 7 E 50 MG ORE 19(FLECAINIDE 100MG AT 7AM AND 50MG AT 7PM)
     Route: 048
     Dates: start: 20221212, end: 20221223

REACTIONS (2)
  - Syncope [Recovered/Resolved]
  - Atrioventricular block second degree [Recovered/Resolved]

NARRATIVE: CASE EVENT DATE: 20221212
